FAERS Safety Report 9177831 (Version 1)
Quarter: 2013Q1

REPORT INFORMATION
  Report Type: Spontaneous
  Country: US (occurrence: None)
  Receive Date: 20130319
  Receipt Date: 20130319
  Transmission Date: 20140127
  Serious: Yes (Life-Threatening)
  Sender: FDA-Public Use
  Company Number: FK201300777

PATIENT
  Age: 66 Year
  Sex: Female
  Weight: 58.5 kg

DRUGS (2)
  1. VANCOMYCIN [Suspect]
     Indication: PYREXIA
     Dosage: 500MG@300ML/HOUR
     Route: 042
     Dates: start: 20130227, end: 20130227
  2. TAZICEF [Suspect]
     Dosage: EVERY HD
     Route: 042

REACTIONS (2)
  - Unresponsive to stimuli [None]
  - Cardiac arrest [None]
